FAERS Safety Report 8932994 (Version 1)
Quarter: 2013Q1

REPORT INFORMATION
  Report Type: Spontaneous
  Country: US (occurrence: None)
  Receive Date: 20121127
  Receipt Date: 20121127
  Transmission Date: 20140127
  Serious: Yes (Life-Threatening, Hospitalization)
  Sender: FDA-Public Use
  Company Number: None

PATIENT
  Age: 5 Year
  Sex: Male
  Weight: 16.1 kg

DRUGS (5)
  1. CYCLOPHOSPHAMIDE [Suspect]
     Indication: NEUROBLASTOMA
     Dosage: 330MGIVQ 28DAYS+16MGPOQD
     Route: 042
     Dates: start: 20111115, end: 20120918
  2. BEVACIZUMAB [Suspect]
     Route: 042
     Dates: start: 20111231, end: 20120927
  3. ZOMETA [Concomitant]
  4. VITAMIN D [Concomitant]
  5. CALCIUM [Concomitant]

REACTIONS (5)
  - Haematuria [None]
  - Proteinuria [None]
  - Cystitis haemorrhagic [None]
  - Anaphylactic reaction [None]
  - Hypertensive crisis [None]
